FAERS Safety Report 5388666-3 (Version None)
Quarter: 2007Q3

REPORT INFORMATION
  Report Type: 
  Country: None (occurrence: None)
  Receive Date: 20070712
  Receipt Date: 20070629
  Transmission Date: 20080115
  Serious: Yes (Hospitalization)
  Sender: FDA-Public Use
  Company Number: 100#08#2007-02421

PATIENT
  Age: 38 Year
  Sex: Male

DRUGS (4)
  1. ETHAMBUTOL HYDROCHLORIDE [Suspect]
     Indication: TUBERCULOSIS
     Dosage: 750 MG
  2. RIFAMPICIN [Suspect]
     Indication: TUBERCULOSIS
     Dosage: 450 MG
  3. ISONIAZID [Suspect]
     Indication: TUBERCULOSIS
     Dosage: 300 MG
  4. PYRAZINAMIDE [Suspect]
     Indication: TUBERCULOSIS
     Dosage: 1200 MG

REACTIONS (27)
  - ABDOMINAL PAIN [None]
  - ANTIBODY TEST POSITIVE [None]
  - ANTINUCLEAR ANTIBODY POSITIVE [None]
  - ARTHRALGIA [None]
  - BLOOD IMMUNOGLOBULIN A INCREASED [None]
  - COMPLEMENT FACTOR C3 INCREASED [None]
  - CREPITATIONS [None]
  - ERYTHEMA [None]
  - GLOMERULONEPHRITIS PROLIFERATIVE [None]
  - HAEMATURIA [None]
  - HENOCH-SCHONLEIN PURPURA [None]
  - KIDNEY ENLARGEMENT [None]
  - LEUKOCYTOCLASTIC VASCULITIS [None]
  - LUNG INFILTRATION [None]
  - LYMPHOCYTE PERCENTAGE DECREASED [None]
  - MALAISE [None]
  - NEPHRITIS [None]
  - NEUTROPHIL PERCENTAGE INCREASED [None]
  - PRODUCTIVE COUGH [None]
  - PROTEINURIA [None]
  - PURPURA [None]
  - PYREXIA [None]
  - RASH [None]
  - RED BLOOD CELL SEDIMENTATION RATE INCREASED [None]
  - SKIN LESION [None]
  - SKIN NECROSIS [None]
  - ULTRASOUND KIDNEY ABNORMAL [None]
